FAERS Safety Report 9448649 (Version 1)
Quarter: 2013Q3

REPORT INFORMATION
  Report Type: Spontaneous
  Country: US (occurrence: US)
  Receive Date: 20130808
  Receipt Date: 20130808
  Transmission Date: 20140515
  Serious: Yes (Hospitalization, Other)
  Sender: FDA-Public Use
  Company Number: US-BAYER-2013-093423

PATIENT
  Age: 74 Year
  Sex: Male
  Weight: 87.98 kg

DRUGS (14)
  1. BAYER ASPIRIN REGIMEN ADULT LOW STRENGTH [Suspect]
     Indication: CARDIOVASCULAR EVENT PROPHYLAXIS
     Dosage: 1 DF, QD
     Route: 048
     Dates: start: 20070925, end: 20130417
  2. NEXIUM [Concomitant]
     Indication: PROPHYLAXIS
     Dosage: 20 MG, QD
     Route: 048
     Dates: start: 20130410
  3. MIRALAX [Concomitant]
     Indication: GASTROINTESTINAL OBSTRUCTION
     Dosage: 17 MG, QD
     Route: 048
     Dates: start: 2003
  4. LISINOPRIL [Concomitant]
     Indication: HYPERTENSION
     Dosage: 40 MG, BID
     Dates: start: 2009
  5. SIMVASTATIN [Concomitant]
     Indication: DYSLIPIDAEMIA
     Dosage: 20 MG, QD
     Route: 048
     Dates: start: 2009
  6. ERGOCALCIFEROL [Concomitant]
     Indication: REHABILITATION THERAPY
     Dosage: 2000 IU, QD
     Dates: start: 2003
  7. FERROUS SULFATE [Concomitant]
     Indication: ANAEMIA
     Dosage: 86 MG, QD
     Route: 048
     Dates: start: 2003
  8. ASCORBIC ACID [Concomitant]
     Indication: REHABILITATION THERAPY
     Dosage: 1000 MG, QD
     Route: 048
  9. CHONDROITIN [Concomitant]
     Indication: ARTHROPATHY
     Dosage: 1500 MG, QD
     Route: 048
     Dates: start: 2003
  10. GLUCOSAMINE [Concomitant]
     Indication: ARTHROPATHY
     Dosage: 1200 MG, QD
     Route: 048
     Dates: start: 2003
  11. FISH OIL [Concomitant]
     Indication: REHABILITATION THERAPY
     Dosage: 1000 MG, BID
     Route: 048
  12. ZINC [Concomitant]
     Indication: REHABILITATION THERAPY
     Dosage: 1 DF, QD
     Route: 048
  13. MELATONIN [Concomitant]
     Indication: SLEEP DISORDER THERAPY
     Dosage: 9 MG, QD
     Route: 048
     Dates: start: 2012
  14. DOXAZOSIN [Concomitant]
     Indication: BENIGN PROSTATIC HYPERPLASIA
     Dosage: UNK UNK, Q4HR
     Route: 048
     Dates: start: 20120207

REACTIONS (9)
  - Bladder outlet obstruction [None]
  - Micturition urgency [None]
  - Pain [None]
  - Blood urine present [Recovered/Resolved]
  - Haemorrhage [None]
  - Constipation [None]
  - Post procedural haemorrhage [Recovered/Resolved]
  - Urinary retention [None]
  - Discomfort [None]
